FAERS Safety Report 4548396-4 (Version None)
Quarter: 2004Q4

REPORT INFORMATION
  Report Type: 
  Country: None (occurrence: None)
  Receive Date: 20041227
  Receipt Date: 20040927
  Transmission Date: 20050328
  Serious: Yes (Hospitalization)
  Sender: FDA-Public Use
  Company Number: 04P-163-0274819

PATIENT
  Age: 45 Year
  Sex: Male
  Weight: 83.9154 kg

DRUGS (14)
  1. HUMIRA [Suspect]
     Indication: RHEUMATOID ARTHRITIS
     Dosage: 40 MG, 1 IN 2 WK, SUBCUTANEOUS
     Route: 058
     Dates: start: 20040501, end: 20040501
  2. HUMIRA [Suspect]
     Indication: RHEUMATOID ARTHRITIS
     Dosage: 40 MG, 1 IN 2 WK, SUBCUTANEOUS
     Route: 058
     Dates: start: 20040501, end: 20040801
  3. METHOTREXATE [Concomitant]
  4. GABAPENTIN [Concomitant]
  5. CANDESARTAN CILEXETIL [Concomitant]
  6. SULFASALAZINE [Concomitant]
  7. RABEPRAZOLE SODIUM [Concomitant]
  8. CARISOPRODOL [Concomitant]
  9. CELECOXIB [Concomitant]
  10. LEVOTHYROXINE SODIUM [Concomitant]
  11. HYDROXYCHLOROQUINE PHOSPHATE [Concomitant]
  12. BUDESONIDE [Concomitant]
  13. FENTANYL [Concomitant]
  14. VALDECOXIB [Concomitant]

REACTIONS (6)
  - ANAEMIA [None]
  - HERPES ZOSTER [None]
  - PNEUMONIA [None]
  - STAPHYLOCOCCAL BACTERAEMIA [None]
  - URINARY TRACT INFECTION [None]
  - WEIGHT DECREASED [None]
